FAERS Safety Report 6182796-4 (Version None)
Quarter: 2009Q2

REPORT INFORMATION
  Report Type: 
  Country: None (occurrence: None)
  Receive Date: 20090507
  Receipt Date: 20090429
  Transmission Date: 20091009
  Serious: Yes (Hospitalization)
  Sender: FDA-Public Use
  Company Number: US-WYE-H09159109

PATIENT
  Sex: Male
  Weight: 144.74 kg

DRUGS (14)
  1. TORISEL [Suspect]
     Indication: RENAL CANCER METASTATIC
     Route: 042
     Dates: start: 20090402, end: 20090416
  2. HUMALOG [Concomitant]
     Indication: DIABETES MELLITUS
     Dosage: ^SLIDING SCALE^
  3. MORPHINE [Concomitant]
     Dosage: AS NEEDED
  4. CLONAZEPAM [Concomitant]
     Dosage: UNKNOWN
  5. ZOLOFT [Concomitant]
     Dosage: UNKNOWN
  6. NEURONTIN [Concomitant]
     Dosage: UNKNOWN
  7. COMPAZINE [Concomitant]
     Dosage: AS NEEDED
  8. IMODIUM [Concomitant]
     Dosage: AS NEEDED
  9. SORBITOL [Concomitant]
     Dosage: AS NEEDED
  10. FENTANYL [Concomitant]
     Dosage: UNKNOWN
  11. HYDROCODONE BITARTRATE [Concomitant]
     Dosage: UNKNOWN
  12. LABETALOL HCL [Concomitant]
     Dosage: UNKNOWN
  13. LANTUS [Concomitant]
     Indication: DIABETES MELLITUS
     Dosage: ^SLIDING SCALE^
  14. VITAMINS NOS [Concomitant]
     Dosage: UNKNOWN

REACTIONS (4)
  - ASTHENIA [None]
  - BLOOD CREATININE INCREASED [None]
  - DIARRHOEA [None]
  - HALLUCINATION [None]
